FAERS Safety Report 12556504 (Version 1)
Quarter: 2016Q3

REPORT INFORMATION
  Report Type: Other
  Country: CN (occurrence: CN)
  Receive Date: 20160714
  Receipt Date: 20160714
  Transmission Date: 20161109
  Serious: Yes (Other)
  Sender: FDA-Public Use
  Company Number: CN-WARNER CHILCOTT, LLC-1055047

PATIENT
  Age: 70 Year
  Sex: Female

DRUGS (1)
  1. ACTONEL [Suspect]
     Active Substance: RISEDRONATE SODIUM
     Route: 048

REACTIONS (4)
  - Back pain [Unknown]
  - Osteonecrosis [Unknown]
  - Spinal compression fracture [Unknown]
  - Kyphoscoliosis [Unknown]
